FAERS Safety Report 4290127-X (Version None)
Quarter: 2004Q1

REPORT INFORMATION
  Report Type: 
  Country: None (occurrence: None)
  Receive Date: 20040209
  Receipt Date: 20040128
  Transmission Date: 20041129
  Serious: Yes (Death)
  Sender: FDA-Public Use
  Company Number: GB-JNJFOC-20031103970

PATIENT
  Age: 79 Year
  Sex: Male

DRUGS (3)
  1. TOPIRAMATE [Suspect]
     Indication: CONVULSION
     Dosage: 75 MG, 2 IN 1 DAY, ORAL
     Route: 048
     Dates: start: 20030415, end: 20031021
  2. AMOXICILLIN [Concomitant]
  3. CO-CODOMOL (UNKNOWN) PANADEINE CO [Concomitant]

REACTIONS (4)
  - ENDOCARDITIS BACTERIAL [None]
  - LARGE INTESTINE PERFORATION [None]
  - PERITONITIS [None]
  - SEPTIC SHOCK [None]
